FAERS Safety Report 14460593 (Version 3)
Quarter: 2018Q1

REPORT INFORMATION
  Report Type: Report from Study
  Country: CA (occurrence: CA)
  Receive Date: 20180130
  Receipt Date: 20180322
  Transmission Date: 20180509
  Serious: Yes (Hospitalization, Other)
  Sender: FDA-Public Use
  Company Number: CA-TAKEDA-2017TUS027573

PATIENT
  Age: 18 Year
  Sex: Female

DRUGS (2)
  1. VEDOLIZUMAB [Suspect]
     Active Substance: VEDOLIZUMAB
     Indication: CROHN^S DISEASE
     Dosage: 300 MG, UNK
     Route: 042
     Dates: start: 20170926
  2. STELARA [Concomitant]
     Active Substance: USTEKINUMAB
     Dosage: UNK

REACTIONS (4)
  - Intestinal perforation [Unknown]
  - Crohn^s disease [Unknown]
  - Intestinal obstruction [Recovered/Resolved]
  - Abscess intestinal [Unknown]

NARRATIVE: CASE EVENT DATE: 20171222
